FAERS Safety Report 6759117-9 (Version None)
Quarter: 2010Q2

REPORT INFORMATION
  Report Type: 
  Country: None (occurrence: None)
  Receive Date: 20100607
  Receipt Date: 20100602
  Transmission Date: 20101027
  Serious: Yes (Hospitalization, Other)
  Sender: FDA-Public Use
  Company Number: CHPA2010US09478

PATIENT
  Age: 86 Year
  Sex: Female
  Weight: 75.283 kg

DRUGS (1)
  1. BENEFIBER W/ WHEAT DEXTRIN (NCH) [Suspect]
     Indication: MEDICAL DIET
     Dosage: 1 TABLESPOON TWICE DAILY
     Route: 048
     Dates: end: 20100531

REACTIONS (10)
  - DECREASED APPETITE [None]
  - DIVERTICULITIS [None]
  - DYSPHAGIA [None]
  - ERUCTATION [None]
  - FLATULENCE [None]
  - FREQUENT BOWEL MOVEMENTS [None]
  - INCORRECT DOSE ADMINISTERED [None]
  - NAUSEA [None]
  - SURGERY [None]
  - THROMBOSIS [None]
